FAERS Safety Report 5767781-6 (Version None)
Quarter: 2008Q2

REPORT INFORMATION
  Report Type: 
  Country: None (occurrence: None)
  Receive Date: 20080612
  Receipt Date: 20080602
  Transmission Date: 20081010
  Serious: Yes (Death, Hospitalization, Other)
  Sender: FDA-Public Use
  Company Number: US-ABBOTT-08P-163-0443899-00

PATIENT
  Age: 78 Year
  Sex: Male
  Weight: 90.346 kg

DRUGS (20)
  1. DEPAKOTE [Suspect]
     Indication: CONVULSION
     Route: 048
     Dates: start: 20071224, end: 20080205
  2. DEPAKOTE [Suspect]
     Indication: MYOCLONUS
  3. VALPROATE SODIUM [Suspect]
     Indication: DRUG USE FOR UNKNOWN INDICATION
     Route: 042
     Dates: start: 20080205, end: 20080208
  4. VALPROIC ACID SYRUP [Suspect]
     Indication: DRUG USE FOR UNKNOWN INDICATION
     Route: 048
     Dates: start: 20080209, end: 20080212
  5. VALPROIC ACID SYRUP [Suspect]
     Route: 048
     Dates: start: 20080212, end: 20080214
  6. VALPROIC ACID SYRUP [Suspect]
     Route: 050
     Dates: start: 20080215, end: 20080221
  7. VALPROIC ACID SYRUP [Suspect]
     Route: 050
     Dates: start: 20080222, end: 20080223
  8. VALPROIC ACID SYRUP [Suspect]
     Route: 050
     Dates: start: 20080224, end: 20080225
  9. VALPROIC ACID SYRUP [Suspect]
     Route: 050
     Dates: start: 20080226, end: 20080228
  10. IRINOTECAN HCL [Suspect]
     Indication: GLIOBLASTOMA MULTIFORME
     Dosage: 125MG/M2, 90 MIN ON DAYS 1 AND 15
     Route: 042
     Dates: start: 20071030, end: 20080205
  11. IRINOTECAN HCL [Suspect]
  12. BEVACIZUMAB [Suspect]
     Indication: GLIOBLASTOMA MULTIFORME
     Dosage: 10MG/M2, 90-30 MIN ON DAYS 1 AND 15
     Route: 042
     Dates: start: 20071030, end: 20080205
  13. BEVACIZUMAB [Suspect]
  14. BEVACIZUMAB [Suspect]
  15. ASPIRIN [Suspect]
     Indication: DRUG USE FOR UNKNOWN INDICATION
  16. LORAZEPAM [Suspect]
     Indication: MYOCLONUS
  17. LORAZEPAM [Suspect]
  18. LORAZEPAM [Concomitant]
     Indication: DRUG USE FOR UNKNOWN INDICATION
  19. LEVETIRACETAM [Concomitant]
     Indication: CONVULSION
  20. CLONAZEPAM [Concomitant]
     Indication: CONVULSION
     Dates: start: 20080201

REACTIONS (18)
  - AMMONIA INCREASED [None]
  - ASPIRATION [None]
  - CONVULSION [None]
  - DEPRESSED LEVEL OF CONSCIOUSNESS [None]
  - DIARRHOEA [None]
  - DYSPNOEA [None]
  - GASTROINTESTINAL HAEMORRHAGE [None]
  - GLIOBLASTOMA MULTIFORME [None]
  - HYPOMAGNESAEMIA [None]
  - INFECTION [None]
  - MENTAL DISORDER [None]
  - MYOCLONUS [None]
  - PNEUMONIA ASPIRATION [None]
  - RESPIRATORY FAILURE [None]
  - SEDATION [None]
  - SOMNOLENCE [None]
  - URINARY TRACT INFECTION [None]
  - WHITE BLOOD CELL COUNT INCREASED [None]
